FAERS Safety Report 9714160 (Version 1)
Quarter: 2013Q4

REPORT INFORMATION
  Report Type: Spontaneous
  Country: US (occurrence: US)
  Receive Date: 20131126
  Receipt Date: 20131126
  Transmission Date: 20140711
  Serious: No
  Sender: FDA-Public Use
  Company Number: US-GILEAD-2008-0019005

PATIENT
  Sex: Female
  Weight: 52.16 kg

DRUGS (12)
  1. LETAIRIS [Suspect]
     Indication: PULMONARY ARTERIAL HYPERTENSION
     Route: 048
     Dates: start: 20070824
  2. REVATIO [Concomitant]
  3. WARFARIN [Concomitant]
  4. LASIX [Concomitant]
  5. METOPROLOL SUCC ER [Concomitant]
  6. DIGOXIN [Concomitant]
  7. LEVOTHROID [Concomitant]
  8. POTASSIUM CHLORIDE [Concomitant]
  9. PROTONIX [Concomitant]
  10. FLUTICASONE NASAL SPRAY [Concomitant]
  11. FOSAMAX [Concomitant]
  12. CALCIUM + D [Concomitant]

REACTIONS (1)
  - Constipation [None]
